FAERS Safety Report 8953196 (Version 1)
Quarter: 2012Q4

REPORT INFORMATION
  Report Type: 
  Country: TW (occurrence: TW)
  Receive Date: 20121206
  Receipt Date: 20121206
  Transmission Date: 20130627
  Serious: Yes (Other)
  Sender: FDA-Public Use
  Company Number: TW-ACCORD-015477

PATIENT
  Age: 47 Year
  Sex: Female

DRUGS (9)
  1. RISPERIDONE [Concomitant]
  2. MAGNESIUM OXIDE [Concomitant]
     Dosage: 500~1500 mg/day
  3. VENLAFAXINE [Concomitant]
  4. QUETIAPINE FUMARATE [Suspect]
     Indication: SCHIZOPHRENIA
     Dosage: Quetiapine: Initially 400 mg/day for 01 week then tapered off to 300 mg/day.
  5. ZIPRASIDONE [Concomitant]
     Indication: SCHIZOPHRENIA
     Dosage: 40~120 mg/day
  6. ACETAMINOPHEN [Concomitant]
     Indication: UPPER RESPIRATORY TRACT INFECTION
     Dosage: From day 134 to 136
  7. BROTIZOLAM [Concomitant]
     Dosage: 0.25~0.5 mg/day
  8. AMISULPRIDE [Concomitant]
     Indication: SCHIZOPHRENIA
     Dosage: 100~200 mg/day
  9. BROMAZEPAM [Concomitant]
     Dosage: 3~6 mg/day

REACTIONS (1)
  - Hepatocellular injury [Recovered/Resolved]
